FAERS Safety Report 9368930 (Version 1)
Quarter: 2013Q2

REPORT INFORMATION
  Report Type: Spontaneous
  Country: ES (occurrence: None)
  Receive Date: 20130621
  Receipt Date: 20130621
  Transmission Date: 20140414
  Serious: Yes (Hospitalization)
  Sender: FDA-Public Use
  Company Number: IPC201306-000230

PATIENT
  Age: 22 Year
  Sex: Male

DRUGS (1)
  1. METFORMIN HYDROCHLORIDE [Suspect]

REACTIONS (3)
  - Lactic acidosis [None]
  - Toxicity to various agents [None]
  - Metabolic acidosis [None]
